FAERS Safety Report 8201340-0 (Version None)
Quarter: 2012Q1

REPORT INFORMATION
  Report Type: 
  Country: None (occurrence: None)
  Receive Date: 20120308
  Receipt Date: 20120228
  Transmission Date: 20120608
  Serious: Yes (Disabling)
  Sender: FDA-Public Use
  Company Number: 2012MA002825

PATIENT
  Age: 91 Year
  Sex: Male

DRUGS (9)
  1. POLYETHYLENE GLYCOL [Concomitant]
  2. DONEPEZIL HYDROCHLORIDE [Suspect]
  3. ACETAMINOPHEN AND CODEINE PHOSPHATE [Concomitant]
  4. LANSOPRAZOLE [Concomitant]
  5. LISINOPRIL [Concomitant]
  6. ACETYLSALICYLIC ACID SRT [Concomitant]
  7. ASPIRIN [Concomitant]
  8. AMLODIPINE [Concomitant]
  9. TRIMETHOPRIM [Concomitant]

REACTIONS (3)
  - EXTRAPYRAMIDAL DISORDER [None]
  - URINARY INCONTINENCE [None]
  - PARKINSON'S DISEASE [None]
